FAERS Safety Report 14878682 (Version 1)
Quarter: 2018Q2

REPORT INFORMATION
  Report Type: Spontaneous
  Country: US (occurrence: US)
  Receive Date: 20180511
  Receipt Date: 20180511
  Transmission Date: 20180711
  Serious: No
  Sender: FDA-Public Use
  Company Number: US-PUMA BIOTECHNOLOGY, LTD.-2018US003462

PATIENT

DRUGS (1)
  1. NERATINIB [Suspect]
     Active Substance: NERATINIB
     Indication: BREAST CANCER
     Dosage: UNK
     Dates: start: 201803

REACTIONS (6)
  - Diarrhoea [Unknown]
  - Discomfort [Unknown]
  - Dyspepsia [Unknown]
  - Abdominal pain upper [Unknown]
  - Vomiting [Unknown]
  - Nausea [Unknown]

NARRATIVE: CASE EVENT DATE: 201803
